FAERS Safety Report 4786350-8 (Version None)
Quarter: 2005Q3

REPORT INFORMATION
  Report Type: 
  Country: None (occurrence: None)
  Receive Date: 20050914
  Receipt Date: 20050216
  Transmission Date: 20060218
  Serious: Yes (Life-Threatening, Hospitalization)
  Sender: FDA-Public Use
  Company Number: 163-20785-05020308

PATIENT
  Age: 83 Year
  Sex: Female

DRUGS (9)
  1. THALOMID [Suspect]
     Indication: MULTIPLE MYELOMA
     Dosage: 100 MG, QHS, ORAL
     Route: 048
     Dates: start: 20050107, end: 20050118
  2. DEXAMETHASONE [Suspect]
     Indication: MULTIPLE MYELOMA
     Dosage: 40 MG, DAYS 1-4, 9-12, 17-20, ORAL
     Route: 048
  3. LOVENOX [Concomitant]
  4. SEPTRA DS [Concomitant]
  5. ZOMETA [Concomitant]
  6. SYNTHROID [Concomitant]
  7. TAMOXIFEN CITRATE [Concomitant]
  8. OXYCODONE HCL [Concomitant]
  9. METOPROLOL TARTRATE [Concomitant]

REACTIONS (9)
  - ANAEMIA [None]
  - CYTOMEGALOVIRUS COLITIS [None]
  - DEEP VEIN THROMBOSIS [None]
  - DYSPNOEA [None]
  - HYPOALBUMINAEMIA [None]
  - HYPOCALCAEMIA [None]
  - MALNUTRITION [None]
  - MELAENA [None]
  - PLEURAL EFFUSION [None]
